FAERS Safety Report 6614138-1 (Version None)
Quarter: 2010Q1

REPORT INFORMATION
  Report Type: 
  Country: None (occurrence: None)
  Receive Date: 20100303
  Receipt Date: 20100303
  Transmission Date: 20100710
  Serious: No
  Sender: FDA-Public Use
  Company Number: None

PATIENT
  Age: 25 Year
  Sex: Female

DRUGS (1)
  1. OPTIRAY 350 [Suspect]
     Indication: COMPUTERISED TOMOGRAM HEAD
     Dosage: 100 ML X1 IV
     Route: 042
     Dates: start: 20100228

REACTIONS (3)
  - CONTRAST MEDIA REACTION [None]
  - RASH [None]
  - URTICARIA [None]
